FAERS Safety Report 9827313 (Version 1)
Quarter: 2013Q4

REPORT INFORMATION
  Report Type: Spontaneous
  Country: US (occurrence: None)
  Receive Date: 20131223
  Receipt Date: 20131223
  Transmission Date: 20140711
  Serious: No
  Sender: FDA-Public Use
  Company Number: 220347LEO

PATIENT
  Sex: Female

DRUGS (3)
  1. LISINOPRIL (LISINOPRIL) [Concomitant]
  2. CYMBALTA (DULOXETINE HYDROCHLORIDE) [Concomitant]
  3. PICATO [Suspect]
     Indication: SKIN DISORDER
     Dosage: FOR 2 DAYS, TOPICAL
     Dates: start: 20130127, end: 20130128

REACTIONS (3)
  - Application site vesicles [None]
  - Drug dispensing error [None]
  - Incorrect dose administered [None]
